FAERS Safety Report 5249906-4 (Version None)
Quarter: 2007Q1

REPORT INFORMATION
  Report Type: 
  Country: None (occurrence: None)
  Receive Date: 20070228
  Receipt Date: 20060706
  Transmission Date: 20070707
  Serious: No
  Sender: FDA-Public Use
  Company Number: US-GLAXOSMITHKLINE-A0565544A

PATIENT
  Age: 49 Year
  Sex: Female
  Weight: 118.2 kg

DRUGS (4)
  1. LAMICTAL [Suspect]
     Indication: BIPOLAR DISORDER
     Dosage: 50MG PER DAY
     Route: 048
  2. LEXAPRO [Concomitant]
     Indication: DEPRESSION
     Dosage: 10MG PER DAY
     Route: 048
     Dates: start: 20050107
  3. AMBIEN [Concomitant]
     Indication: INSOMNIA
     Dosage: 15MG PER DAY
     Route: 048
     Dates: start: 20030416
  4. KLONOPIN [Concomitant]
     Indication: ANXIETY
     Dosage: .25MG FOUR TIMES PER DAY
     Route: 048
     Dates: start: 20030509

REACTIONS (1)
  - PRURITUS [None]
